FAERS Safety Report 8484319-3 (Version None)
Quarter: 2012Q3

REPORT INFORMATION
  Report Type: 
  Country: None (occurrence: None)
  Receive Date: 20120703
  Receipt Date: 20120625
  Transmission Date: 20120928
  Serious: Yes (Other)
  Sender: FDA-Public Use
  Company Number: PHHY2012AU051998

PATIENT
  Sex: Female

DRUGS (4)
  1. ISOPTIN [Concomitant]
     Indication: HYPERTENSION
  2. ENABLEX [Suspect]
     Dosage: 7.5 MG, BEFORE BED
     Route: 048
  3. ECHINACEA [Concomitant]
  4. LUMIGAN [Concomitant]

REACTIONS (13)
  - DELIRIUM [None]
  - RESTLESSNESS [None]
  - AMNESIA [None]
  - URINARY TRACT INFECTION [None]
  - DRUG INEFFECTIVE [None]
  - SNEEZING [None]
  - DRY MOUTH [None]
  - AGITATION [None]
  - COUGH [None]
  - STARING [None]
  - GLAUCOMA [None]
  - DEMENTIA [None]
  - SCRATCH [None]
